FAERS Safety Report 24076389 (Version 1)
Quarter: 2024Q3

REPORT INFORMATION
  Report Type: Spontaneous
  Country: SA (occurrence: SA)
  Receive Date: 20240711
  Receipt Date: 20240711
  Transmission Date: 20241017
  Serious: Yes (Other)
  Sender: STRIDES
  Company Number: SA-STRIDES ARCOLAB LIMITED-2024SP008090

PATIENT
  Age: 8 Year
  Sex: Female

DRUGS (3)
  1. CINACALCET [Suspect]
     Active Substance: CINACALCET
     Indication: Hyperparathyroidism
     Dosage: UNK
     Route: 065
  2. ALFACALCIDOL [Concomitant]
     Active Substance: ALFACALCIDOL
     Indication: Hypophosphataemic osteomalacia
     Dosage: UNK
     Route: 065
  3. BUROSUMAB [Concomitant]
     Active Substance: BUROSUMAB
     Indication: Hypophosphataemic osteomalacia
     Dosage: UNK
     Route: 065

REACTIONS (1)
  - Therapy non-responder [Unknown]
